FAERS Safety Report 11520510 (Version 1)
Quarter: 2015Q3

REPORT INFORMATION
  Report Type: Spontaneous
  Country: US (occurrence: US)
  Receive Date: 20150918
  Receipt Date: 20150918
  Transmission Date: 20151125
  Serious: No
  Sender: FDA-Public Use
  Company Number: US-ROCHE-735611

PATIENT
  Age: 55 Year
  Sex: Male

DRUGS (2)
  1. PEGASYS [Suspect]
     Active Substance: PEGINTERFERON ALFA-2A
     Indication: HEPATITIS C
     Dosage: FORM: PRE-FILLED SYRINGE
     Route: 058
     Dates: start: 20101008, end: 20110113
  2. RIBAVIRIN. [Suspect]
     Active Substance: RIBAVIRIN
     Indication: HEPATITIS C
     Dosage: DIVIDED DOSES
     Route: 048
     Dates: start: 20101008, end: 20110113

REACTIONS (8)
  - Fatigue [Unknown]
  - Anaemia [Unknown]
  - Influenza like illness [Unknown]
  - Influenza [Unknown]
  - Fatigue [Unknown]
  - Depression [Unknown]
  - Malaise [Unknown]
  - Skin discolouration [Unknown]

NARRATIVE: CASE EVENT DATE: 20101009
